FAERS Safety Report 7153742-1 (Version None)
Quarter: 2010Q4

REPORT INFORMATION
  Report Type: 
  Country: None (occurrence: None)
  Receive Date: 20101213
  Receipt Date: 20101203
  Transmission Date: 20110411
  Serious: Yes (Hospitalization)
  Sender: FDA-Public Use
  Company Number: BR-ASTRAZENECA-2010SE57594

PATIENT
  Age: 30 Year
  Sex: Female
  Weight: 73 kg

DRUGS (6)
  1. ATENOLOL [Suspect]
     Indication: ARRHYTHMIA
     Route: 048
     Dates: start: 20040101, end: 20090101
  2. SELOZOK [Suspect]
     Indication: ARRHYTHMIA
     Route: 048
     Dates: start: 20090101, end: 20101101
  3. SELOZOK [Suspect]
     Route: 048
     Dates: start: 20101101
  4. FUROSEMIDE [Concomitant]
     Route: 048
     Dates: start: 20040101
  5. MAREVAN [Concomitant]
     Route: 048
     Dates: start: 20080101, end: 20100101
  6. SLOW-K [Concomitant]
     Route: 048
     Dates: start: 20080101

REACTIONS (4)
  - AORTIC VALVE STENOSIS [None]
  - DYSPNOEA [None]
  - HEART RATE INCREASED [None]
  - MITRAL VALVE DISEASE [None]
